FAERS Safety Report 9290495 (Version 1)
Quarter: 2013Q2

REPORT INFORMATION
  Report Type: Spontaneous
  Country: US (occurrence: US)
  Receive Date: 20130514
  Receipt Date: 20130514
  Transmission Date: 20140414
  Serious: No
  Sender: FDA-Public Use
  Company Number: US-BRACCO-008507

PATIENT
  Age: 47 Year
  Sex: Female
  Weight: 93 kg

DRUGS (2)
  1. PROHANCE [Suspect]
     Indication: BONE LESION
     Route: 042
     Dates: start: 20120827, end: 20120827
  2. PROHANCE [Suspect]
     Indication: NUCLEAR MAGNETIC RESONANCE IMAGING
     Route: 042
     Dates: start: 20120827, end: 20120827

REACTIONS (2)
  - Urticaria [Recovered/Resolved]
  - Skin warm [Recovered/Resolved]
